FAERS Safety Report 5369439-4 (Version None)
Quarter: 2007Q2

REPORT INFORMATION
  Report Type: 
  Country: None (occurrence: None)
  Receive Date: 20070625
  Receipt Date: 20070620
  Transmission Date: 20071010
  Serious: Yes (Other)
  Sender: FDA-Public Use
  Company Number: US-ELI_LILLY_AND_COMPANY-US200705003818

PATIENT
  Age: 68 Year
  Sex: Female

DRUGS (1)
  1. GEMZAR [Suspect]
     Indication: BLADDER TRANSITIONAL CELL CARCINOMA
     Dosage: 1650 UNK, OTHER
     Route: 042
     Dates: end: 20070315

REACTIONS (1)
  - MALIGNANT NEOPLASM PROGRESSION [None]
